FAERS Safety Report 6118774-0 (Version None)
Quarter: 2009Q1

REPORT INFORMATION
  Report Type: 
  Country: None (occurrence: None)
  Receive Date: 20090314
  Receipt Date: 20090227
  Transmission Date: 20090719
  Serious: No
  Sender: FDA-Public Use
  Company Number: US-ABBOTT-09P-163-0559733-00

PATIENT
  Sex: Female
  Weight: 58.112 kg

DRUGS (5)
  1. HUMIRA [Suspect]
     Indication: RHEUMATOID ARTHRITIS
     Route: 058
     Dates: start: 20060601
  2. HUMIRA [Suspect]
     Indication: PSORIASIS
  3. CELEBREX [Concomitant]
     Indication: DRUG USE FOR UNKNOWN INDICATION
     Route: 048
  4. METHOTREXATE [Concomitant]
     Indication: RHEUMATOID ARTHRITIS
     Dosage: 10MG WEEKLY
  5. ERRIN [Concomitant]
     Indication: CONTRACEPTION
     Route: 048

REACTIONS (1)
  - INCORRECT DOSE ADMINISTERED [None]
